FAERS Safety Report 15651437 (Version 1)
Quarter: 2018Q4

REPORT INFORMATION
  Report Type: Spontaneous
  Country: US (occurrence: US)
  Receive Date: 20181123
  Receipt Date: 20181123
  Transmission Date: 20190205
  Serious: No
  Sender: FDA-Public Use
  Company Number: US-SA-2018SA320225

PATIENT
  Age: 48 Year
  Sex: Male
  Weight: 79.3 kg

DRUGS (18)
  1. FABRAZYME [Suspect]
     Active Substance: AGALSIDASE BETA
     Indication: FABRY^S DISEASE
     Dosage: 1 MG/KG, QOW
     Route: 041
     Dates: start: 20110106
  2. EPINEPHRINE. [Concomitant]
     Active Substance: EPINEPHRINE
     Indication: ANAPHYLACTIC REACTION
     Dosage: 0.3 MG, PRN
     Route: 030
     Dates: start: 20180920
  3. LMX [LIDOCAINE] [Concomitant]
     Indication: PREMEDICATION
     Dosage: 4 %, PRN
     Route: 061
     Dates: start: 20180920
  4. VENTOLIN HFA [Concomitant]
     Active Substance: ALBUTEROL SULFATE
     Dosage: 1 DF, PRN
     Route: 065
     Dates: start: 20150619
  5. IBUPROFEN. [Concomitant]
     Active Substance: IBUPROFEN
     Dosage: 200 MG, PRN
     Route: 048
     Dates: start: 20181111
  6. LYRICA [Concomitant]
     Active Substance: PREGABALIN
     Dosage: 150 MG, TID
     Route: 048
     Dates: start: 20180807
  7. DRONABINOL. [Concomitant]
     Active Substance: DRONABINOL
     Dosage: 1 DF AS DIRECTED
     Route: 065
     Dates: start: 20160520
  8. AMITRIPTYLINE [Concomitant]
     Active Substance: AMITRIPTYLINE
     Dosage: 25 MG (AS DIRECTED)
     Route: 048
     Dates: start: 20181017
  9. DIPHENHYDRAMINE. [Concomitant]
     Active Substance: DIPHENHYDRAMINE
     Indication: ANAPHYLACTIC REACTION
     Dosage: 25 MG, PRN
     Route: 048
     Dates: start: 20180920
  10. SODIUM CHLORIDE. [Concomitant]
     Active Substance: SODIUM CHLORIDE
     Indication: FLUSHING
     Dosage: 0.9 % (AS DIRECTED)
     Route: 042
     Dates: start: 20180920
  11. DEPAKOTE [Concomitant]
     Active Substance: DIVALPROEX SODIUM
     Dosage: 1000 MG, QD
     Route: 048
     Dates: start: 20170622
  12. STERILE WATER [Concomitant]
     Active Substance: WATER
     Dosage: 16 ML (AS DIRECTED)
     Route: 042
     Dates: start: 20180920
  13. CALCIUM [Concomitant]
     Active Substance: CALCIUM
     Dosage: 1 DF, QD
     Route: 048
     Dates: start: 20150619
  14. MULTIVITAMINS [VITAMINS NOS] [Concomitant]
     Active Substance: VITAMINS
     Dosage: 1 DF, QD
     Route: 048
     Dates: start: 20180715
  15. SIMVASTATIN. [Concomitant]
     Active Substance: SIMVASTATIN
     Dosage: 1 DF, QD
     Route: 048
     Dates: start: 20130304
  16. CYMBALTA [Concomitant]
     Active Substance: DULOXETINE HYDROCHLORIDE
     Dosage: 60 MG (AS DIRECTED)
     Route: 048
     Dates: start: 20181003
  17. NORMAL SALINE [Concomitant]
     Active Substance: SODIUM CHLORIDE
     Indication: FLUSHING
     Dosage: 0.9 % (AS DIRECTED)
     Route: 042
     Dates: start: 20180920
  18. ASPIRIN ACTIV [Concomitant]
     Active Substance: ASPIRIN
     Dosage: 1 DF, QD
     Route: 048
     Dates: start: 20130304

REACTIONS (3)
  - Chills [Unknown]
  - Influenza like illness [Unknown]
  - Pain [Unknown]
